FAERS Safety Report 13860975 (Version 9)
Quarter: 2019Q3

REPORT INFORMATION
  Report Type: Report from Study
  Country: CR (occurrence: CR)
  Receive Date: 20170811
  Receipt Date: 20190923
  Transmission Date: 20191004
  Serious: Yes (Life-Threatening, Hospitalization, Other)
  Sender: FDA-Public Use
  Company Number: PHHY2017CR116440

PATIENT
  Age: 64 Year
  Sex: Female
  Weight: 65 kg

DRUGS (10)
  1. SANDOSTATIN LAR DEPOT [Suspect]
     Active Substance: OCTREOTIDE ACETATE
     Dosage: 30 MG, QMO
     Route: 030
     Dates: start: 201708
  2. SANDOSTATIN LAR DEPOT [Suspect]
     Active Substance: OCTREOTIDE ACETATE
     Dosage: 30 MG, QMO
     Route: 030
     Dates: start: 20180319
  3. SANDOSTATIN LAR DEPOT [Suspect]
     Active Substance: OCTREOTIDE ACETATE
     Dosage: 40 MG, UNK
     Route: 030
  4. SANDOSTATIN LAR DEPOT [Suspect]
     Active Substance: OCTREOTIDE ACETATE
     Dosage: 40 MG, UNK
     Route: 030
     Dates: start: 20180925
  5. SANDOSTATIN LAR DEPOT [Suspect]
     Active Substance: OCTREOTIDE ACETATE
     Dosage: 40 MG, UNK
     Route: 030
     Dates: end: 20190812
  6. SANDOSTATIN LAR DEPOT [Suspect]
     Active Substance: OCTREOTIDE ACETATE
     Indication: NEUROENDOCRINE TUMOUR
     Dosage: 20 MG, QMO
     Route: 030
     Dates: start: 201203, end: 201704
  7. SANDOSTATIN LAR DEPOT [Suspect]
     Active Substance: OCTREOTIDE ACETATE
     Dosage: 20 MG, UNK
     Route: 030
     Dates: start: 20180416
  8. TRAMAL [Concomitant]
     Active Substance: TRAMADOL
     Indication: PAIN
     Route: 065
  9. SANDOSTATIN LAR DEPOT [Suspect]
     Active Substance: OCTREOTIDE ACETATE
     Dosage: 60 MG, QMO (EVERY 30 DAYS)
     Route: 030
  10. SANDOSTATIN LAR DEPOT [Suspect]
     Active Substance: OCTREOTIDE ACETATE
     Dosage: 60 MG, QMO (EVERY 30 DAYS)
     Route: 030
     Dates: end: 20181218

REACTIONS (53)
  - Infarction [Unknown]
  - Device related infection [Unknown]
  - Abdominal discomfort [Unknown]
  - Depressed mood [Unknown]
  - Cough [Unknown]
  - Anaemia [Unknown]
  - Blood count abnormal [Unknown]
  - Pruritus [Unknown]
  - Nasopharyngitis [Unknown]
  - Gait inability [Unknown]
  - Decreased immune responsiveness [Unknown]
  - Asthenia [Unknown]
  - Feeling hot [Unknown]
  - Nausea [Unknown]
  - Cholangitis [Unknown]
  - Decreased appetite [Recovered/Resolved]
  - Hypoxia [Unknown]
  - Haemoglobin decreased [Recovered/Resolved]
  - Abdominal pain upper [Unknown]
  - Headache [Unknown]
  - Faeces pale [Recovered/Resolved]
  - Malaise [Unknown]
  - Metastases to gallbladder [Unknown]
  - Pain in extremity [Unknown]
  - Alopecia [Unknown]
  - Feeling cold [Unknown]
  - Decreased appetite [Unknown]
  - Jaundice [Recovered/Resolved]
  - Stent malfunction [Unknown]
  - Tremor [Unknown]
  - Influenza [Unknown]
  - General physical health deterioration [Unknown]
  - Drug intolerance [Unknown]
  - Drug ineffective [Unknown]
  - Infection [Unknown]
  - Chromaturia [Unknown]
  - Malignant neoplasm progression [Unknown]
  - Metastases to pancreas [Unknown]
  - Psychomotor hyperactivity [Unknown]
  - Feeling abnormal [Unknown]
  - Muscle spasms [Unknown]
  - Chest pain [Unknown]
  - Cardiac disorder [Unknown]
  - Arthralgia [Unknown]
  - Weight decreased [Unknown]
  - Bile duct obstruction [Recovering/Resolving]
  - Neuroendocrine tumour [Unknown]
  - Hepatic cyst [Unknown]
  - Pyrexia [Unknown]
  - Tachycardia [Unknown]
  - Vomiting [Unknown]
  - Fatigue [Unknown]
  - Cholelithiasis [Unknown]

NARRATIVE: CASE EVENT DATE: 201712
